FAERS Safety Report 6770385-X (Version None)
Quarter: 2010Q2

REPORT INFORMATION
  Report Type: 
  Country: None (occurrence: None)
  Receive Date: 20100615
  Receipt Date: 20100610
  Transmission Date: 20101027
  Serious: Yes (Hospitalization, Other)
  Sender: FDA-Public Use
  Company Number: US-RB-011236-10

PATIENT
  Age: 53 Year
  Sex: Male

DRUGS (2)
  1. SUBOXONE [Suspect]
     Route: 060
     Dates: start: 20100501
  2. SUBOXONE [Suspect]
     Dosage: STARTED 2 MG FOUR TIMES DAILY; TAPERED DOWN TO 0 MG.
     Route: 060
     Dates: start: 20100101, end: 20100401

REACTIONS (6)
  - BLOOD PRESSURE INCREASED [None]
  - CEREBROVASCULAR ACCIDENT [None]
  - DRUG WITHDRAWAL SYNDROME [None]
  - GAIT DISTURBANCE [None]
  - RECTAL HAEMORRHAGE [None]
  - SPEECH DISORDER [None]
